FAERS Safety Report 12806047 (Version 2)
Quarter: 2016Q4

REPORT INFORMATION
  Report Type: Spontaneous
  Country: GB (occurrence: GB)
  Receive Date: 20161004
  Receipt Date: 20161028
  Transmission Date: 20170207
  Serious: No
  Sender: FDA-Public Use
  Company Number: GB-ASTELLAS-2016US037996

PATIENT
  Age: 35 Year
  Sex: Female
  Weight: 114 kg

DRUGS (3)
  1. VESICARE [Suspect]
     Active Substance: SOLIFENACIN SUCCINATE
     Indication: MICTURITION URGENCY
     Route: 048
     Dates: start: 20111020
  2. CANDESARTAN [Concomitant]
     Active Substance: CANDESARTAN
     Indication: HYPERTENSION
     Route: 048
     Dates: start: 20160822
  3. VESICARE [Suspect]
     Active Substance: SOLIFENACIN SUCCINATE
     Route: 048
     Dates: start: 201608, end: 20160925

REACTIONS (7)
  - Flushing [Recovering/Resolving]
  - Rosacea [Unknown]
  - Swelling face [Unknown]
  - Facial pain [Unknown]
  - Blister [Unknown]
  - Lichen sclerosus [Unknown]
  - Periorbital oedema [Unknown]

NARRATIVE: CASE EVENT DATE: 1995
